FAERS Safety Report 24284265 (Version 1)
Quarter: 2024Q3

REPORT INFORMATION
  Report Type: Spontaneous
  Country: JP (occurrence: JP)
  Receive Date: 20240905
  Receipt Date: 20240905
  Transmission Date: 20241017
  Serious: Yes (Other)
  Sender: ROCHE
  Company Number: JP-CHUGAI-2024030419AA

PATIENT
  Age: 6 Decade
  Sex: Female

DRUGS (1)
  1. KADCYLA [Suspect]
     Active Substance: ADO-TRASTUZUMAB EMTANSINE
     Indication: Breast cancer recurrent
     Dosage: UNK
     Route: 042
     Dates: start: 2020

REACTIONS (6)
  - Myelosuppression [Unknown]
  - Tumour associated fever [Unknown]
  - Epilepsy [Unknown]
  - Pyrexia [Unknown]
  - Infusion related reaction [Unknown]
  - Metastases to central nervous system [Unknown]
